FAERS Safety Report 23131021 (Version 7)
Quarter: 2024Q2

REPORT INFORMATION
  Report Type: Spontaneous
  Country: US (occurrence: US)
  Receive Date: 20231031
  Receipt Date: 20240614
  Transmission Date: 20240716
  Serious: No
  Sender: FDA-Public Use
  Company Number: US-SA-SAC20231026000782

PATIENT
  Age: 73 Year
  Sex: Female

DRUGS (2)
  1. DUPIXENT [Suspect]
     Active Substance: DUPILUMAB
     Indication: Dermatitis atopic
     Dosage: 600 MG, 1X
     Route: 058
     Dates: start: 202308, end: 202308
  2. DUPIXENT [Suspect]
     Active Substance: DUPILUMAB
     Dosage: 300 MG, QOW
     Route: 058

REACTIONS (11)
  - Staphylococcal infection [Unknown]
  - Rash pustular [Unknown]
  - Swelling face [Unknown]
  - Illness [Unknown]
  - Blister [Unknown]
  - Skin swelling [Unknown]
  - Diarrhoea [Unknown]
  - Influenza [Unknown]
  - Rash pruritic [Unknown]
  - Therapeutic response shortened [Unknown]
  - Hypersensitivity [Unknown]

NARRATIVE: CASE EVENT DATE: 20230101
